FAERS Safety Report 8778259 (Version 2)
Quarter: 2012Q4

REPORT INFORMATION
  Report Type: 
  Country: US (occurrence: US)
  Receive Date: 20120911
  Receipt Date: 20120926
  Transmission Date: 20130627
  Serious: Yes (Hospitalization)
  Sender: FDA-Public Use
  Company Number: US-SANOFI-AVENTIS-2012SA064209

PATIENT
  Age: 81 Year
  Sex: Male

DRUGS (5)
  1. PLAVIX [Suspect]
     Route: 048
     Dates: start: 201206
  2. FUROSEMIDE [Suspect]
     Route: 065
     Dates: start: 201206
  3. PACERONE [Suspect]
     Dosage: daily for 5 days and off on the weekends.
     Route: 065
     Dates: start: 201206
  4. GLIPIZIDE [Concomitant]
  5. LANTUS [Concomitant]
     Dosage: Dose:14 unit(s)
     Dates: start: 201208

REACTIONS (6)
  - Thrombosis [Unknown]
  - Oedema peripheral [Unknown]
  - Intestinal haemorrhage [Unknown]
  - Haemoglobin decreased [Unknown]
  - Haematocrit decreased [Unknown]
  - Constipation [Unknown]
